FAERS Safety Report 18971451 (Version 3)
Quarter: 2021Q2

REPORT INFORMATION
  Report Type: Report from Study
  Country: PE (occurrence: PE)
  Receive Date: 20210304
  Receipt Date: 20210406
  Transmission Date: 20210717
  Serious: Yes (Death, Hospitalization, Other)
  Sender: FDA-Public Use
  Company Number: PE-SEATTLE GENETICS-2021SGN01219

PATIENT
  Age: 55 Year
  Sex: Male

DRUGS (2)
  1. BRENTUXIMAB VEDOTIN [Suspect]
     Active Substance: BRENTUXIMAB VEDOTIN
     Dosage: 144 MILLIGRAM
     Route: 042
     Dates: start: 20201218
  2. BRENTUXIMAB VEDOTIN [Suspect]
     Active Substance: BRENTUXIMAB VEDOTIN
     Indication: HODGKIN^S DISEASE
     Dosage: 147 MILLIGRAM, Q3WEEKS
     Route: 042
     Dates: start: 20210204

REACTIONS (3)
  - COVID-19 pneumonia [Unknown]
  - Thrombosis [Fatal]
  - COVID-19 [Unknown]

NARRATIVE: CASE EVENT DATE: 20210210
